FAERS Safety Report 6574353-2 (Version None)
Quarter: 2010Q1

REPORT INFORMATION
  Report Type: 
  Country: None (occurrence: None)
  Receive Date: 20100208
  Receipt Date: 20100128
  Transmission Date: 20100710
  Serious: Yes (Death)
  Sender: FDA-Public Use
  Company Number: GR-GILEAD-E2B_00000575

PATIENT
  Age: 78 Year
  Sex: Female

DRUGS (1)
  1. AMBRISENTAN [Suspect]
     Indication: PULMONARY HYPERTENSION
     Dosage: 5MG PER DAY
     Route: 048
     Dates: start: 20091201, end: 20100101

REACTIONS (3)
  - GENERAL PHYSICAL HEALTH DETERIORATION [None]
  - PULMONARY FIBROSIS [None]
  - PULMONARY HYPERTENSION [None]
